FAERS Safety Report 9549211 (Version 2)
Quarter: 2013Q4

REPORT INFORMATION
  Report Type: Spontaneous
  Country: BR (occurrence: BR)
  Receive Date: 20130924
  Receipt Date: 20131004
  Transmission Date: 20140711
  Serious: Yes (Hospitalization, Other)
  Sender: FDA-Public Use
  Company Number: BR-ABBVIE-13P-020-1148885-00

PATIENT
  Sex: Female
  Weight: 54 kg

DRUGS (7)
  1. HUMIRA [Suspect]
     Indication: CROHN^S DISEASE
     Dosage: UNIT DOSE: UNSPECIFIED ATTACK DOSE
     Route: 058
     Dates: start: 2008
  2. HUMIRA [Suspect]
     Route: 058
     Dates: end: 2012
  3. UNKNOWN MEDICATIONS [Suspect]
     Indication: PRODUCT USED FOR UNKNOWN INDICATION
  4. PREDNISONE [Concomitant]
     Indication: CROHN^S DISEASE
     Route: 048
     Dates: start: 201307
  5. IMOSEC [Concomitant]
     Indication: DIARRHOEA
     Route: 048
     Dates: start: 201307
  6. OMEPRAZOLE [Concomitant]
     Indication: GASTRIC DISORDER
     Dosage: 40 MG DAILY AT FASTING
     Route: 048
  7. OMEPRAZOLE [Concomitant]
     Indication: PROPHYLAXIS

REACTIONS (8)
  - Gastrointestinal disorder [Recovering/Resolving]
  - Pancreatitis [Recovering/Resolving]
  - Intestinal fistula [Unknown]
  - Hepatic steatosis [Unknown]
  - Anaemia [Not Recovered/Not Resolved]
  - Liver abscess [Unknown]
  - Gastrointestinal infection [Unknown]
  - Liver disorder [Unknown]
